FAERS Safety Report 6814354-X (Version None)
Quarter: 2010Q3

REPORT INFORMATION
  Report Type: 
  Country: None (occurrence: None)
  Receive Date: 20100702
  Receipt Date: 20100628
  Transmission Date: 20110219
  Serious: Yes (Hospitalization)
  Sender: FDA-Public Use
  Company Number: US-SANOFI-AVENTIS-2010SA037467

PATIENT
  Age: 59 Year
  Sex: Male
  Weight: 79 kg

DRUGS (4)
  1. LANTUS [Suspect]
     Indication: TYPE 2 DIABETES MELLITUS
     Route: 058
     Dates: start: 20090101, end: 20100627
  2. SOLOSTAR [Suspect]
     Indication: TYPE 2 DIABETES MELLITUS
  3. METFORMIN HCL [Concomitant]
  4. INSULIN DETEMIR [Concomitant]

REACTIONS (9)
  - ABDOMINAL DISCOMFORT [None]
  - DRUG HYPERSENSITIVITY [None]
  - DYSPNOEA [None]
  - HYPERHIDROSIS [None]
  - LUNG DISORDER [None]
  - OXYGEN SATURATION DECREASED [None]
  - PNEUMONIA [None]
  - RASH [None]
  - WHEEZING [None]
